FAERS Safety Report 20649440 (Version 2)
Quarter: 2025Q3

REPORT INFORMATION
  Report Type: Spontaneous
  Country: EU (occurrence: EU)
  Receive Date: 20220329
  Receipt Date: 20250709
  Transmission Date: 20251021
  Serious: Yes (Hospitalization, Other)
  Sender: MYLAN
  Company Number: EU-LABALTER-202200010

PATIENT
  Age: 45 Year
  Sex: Male

DRUGS (16)
  1. PREGABALIN [Suspect]
     Active Substance: PREGABALIN
     Indication: Product used for unknown indication
  2. PREGABALIN [Suspect]
     Active Substance: PREGABALIN
     Route: 065
  3. PREGABALIN [Suspect]
     Active Substance: PREGABALIN
     Route: 065
  4. PREGABALIN [Suspect]
     Active Substance: PREGABALIN
  5. PAROXETINE [Concomitant]
     Active Substance: PAROXETINE
     Indication: Product used for unknown indication
  6. PAROXETINE [Concomitant]
     Active Substance: PAROXETINE
     Route: 065
  7. PAROXETINE [Concomitant]
     Active Substance: PAROXETINE
     Route: 065
  8. PAROXETINE [Concomitant]
     Active Substance: PAROXETINE
  9. OLANZAPINE [Concomitant]
     Active Substance: OLANZAPINE
     Indication: Product used for unknown indication
  10. OLANZAPINE [Concomitant]
     Active Substance: OLANZAPINE
     Route: 065
  11. OLANZAPINE [Concomitant]
     Active Substance: OLANZAPINE
     Route: 065
  12. OLANZAPINE [Concomitant]
     Active Substance: OLANZAPINE
  13. LITHIUM [Concomitant]
     Active Substance: LITHIUM
     Indication: Product used for unknown indication
  14. LITHIUM [Concomitant]
     Active Substance: LITHIUM
     Route: 065
  15. LITHIUM [Concomitant]
     Active Substance: LITHIUM
     Route: 065
  16. LITHIUM [Concomitant]
     Active Substance: LITHIUM

REACTIONS (5)
  - Toxicity to various agents [Recovered/Resolved]
  - Toxic encephalopathy [Recovered/Resolved]
  - Substance use [Recovered/Resolved]
  - Drug abuse [Recovered/Resolved]
  - Off label use [Unknown]
